FAERS Safety Report 4988928-5 (Version None)
Quarter: 2006Q2

REPORT INFORMATION
  Report Type: 
  Country: None (occurrence: None)
  Receive Date: 20060502
  Receipt Date: 20060227
  Transmission Date: 20061013
  Serious: Yes (Other)
  Sender: FDA-Public Use
  Company Number: US-AMGEN-US170418

PATIENT
  Sex: Male

DRUGS (1)
  1. ENBREL [Suspect]
     Indication: PSORIATIC ARTHROPATHY
     Route: 065
     Dates: start: 20040101, end: 20060301

REACTIONS (6)
  - CONDITION AGGRAVATED [None]
  - GRANULOMA [None]
  - KELOID SCAR [None]
  - SARCOIDOSIS [None]
  - SCAR PAIN [None]
  - TENDERNESS [None]
